FAERS Safety Report 4661621-4 (Version None)
Quarter: 2005Q2

REPORT INFORMATION
  Report Type: 
  Country: None (occurrence: None)
  Receive Date: 20050513
  Receipt Date: 20050509
  Transmission Date: 20051028
  Serious: Yes (Other)
  Sender: FDA-Public Use
  Company Number: 200514050US

PATIENT
  Sex: 0

DRUGS (2)
  1. LOVENOX [Suspect]
     Dosage: DOSE: UNKNOWN
  2. CORTICOSTEROIDS [Concomitant]
     Dosage: DOSE: UNKNOWN

REACTIONS (1)
  - VASCULITIS NECROTISING [None]
